FAERS Safety Report 10049468 (Version 2)
Quarter: 2014Q2

REPORT INFORMATION
  Report Type: Spontaneous
  Country: US (occurrence: US)
  Receive Date: 20140401
  Receipt Date: 20140409
  Transmission Date: 20141212
  Serious: Yes (Other)
  Sender: FDA-Public Use
  Company Number: US-TEVA-471571USA

PATIENT
  Age: 50 Year
  Sex: Male
  Weight: 96.25 kg

DRUGS (10)
  1. PROVIGIL [Suspect]
     Indication: NARCOLEPSY
     Dosage: 400 MILLIGRAM DAILY;
     Dates: start: 201310, end: 20140325
  2. PRILOSEC [Suspect]
  3. INSULIN [Concomitant]
     Indication: DIABETES MELLITUS
  4. COZAAR [Concomitant]
     Indication: HYPERTENSION
     Dosage: 50 MILLIGRAM DAILY;
  5. TENORMIN [Concomitant]
     Indication: HYPERTENSION
     Dosage: 100 MILLIGRAM DAILY;
  6. NEURONTIN [Concomitant]
     Indication: NEURALGIA
     Dosage: 4 GRAM DAILY;
  7. KLONOPIN [Concomitant]
     Indication: RESTLESS LEGS SYNDROME
     Dosage: 2 MILLIGRAM DAILY;
  8. SYMBICORT [Concomitant]
     Indication: LUNG OPERATION
  9. TUDORZA [Concomitant]
     Indication: ANTICHOLINERGIC SYNDROME
  10. CRESTOR [Concomitant]
     Indication: BLOOD CHOLESTEROL INCREASED

REACTIONS (12)
  - Hepatic neoplasm [Unknown]
  - Urticaria [Recovering/Resolving]
  - Drug ineffective [Recovering/Resolving]
  - Belligerence [Recovering/Resolving]
  - Personality change [Recovering/Resolving]
  - Abnormal behaviour [Recovering/Resolving]
  - Therapeutic response changed [Recovered/Resolved]
  - Blood cholesterol increased [Unknown]
  - Hepatic enzyme increased [Unknown]
  - Pulmonary mass [Unknown]
  - Pain [Unknown]
  - Adverse event [Unknown]
